FAERS Safety Report 6672896-4 (Version None)
Quarter: 2010Q2

REPORT INFORMATION
  Report Type: 
  Country: None (occurrence: None)
  Receive Date: 20100408
  Receipt Date: 20100330
  Transmission Date: 20101027
  Serious: Yes (Other)
  Sender: FDA-Public Use
  Company Number: PHEH2010US02972

PATIENT
  Sex: Male

DRUGS (5)
  1. EXELON [Suspect]
     Dosage: 9.5 MG, UNK
     Route: 062
  2. VYTORIN [Concomitant]
  3. ALLOPURINOL [Concomitant]
  4. SPIRONOLACTONE [Concomitant]
  5. AMLODIPINE [Concomitant]

REACTIONS (4)
  - APPLICATION SITE VESICLES [None]
  - NEOPLASM MALIGNANT [None]
  - PRURITUS [None]
  - RASH [None]
